FAERS Safety Report 21946105 (Version 1)
Quarter: 2023Q1

REPORT INFORMATION
  Report Type: Spontaneous
  Country: AR (occurrence: AR)
  Receive Date: 20230202
  Receipt Date: 20230202
  Transmission Date: 20230418
  Serious: Yes (Death)
  Sender: FDA-Public Use
  Company Number: AR-PFIZER INC-PV202300020962

PATIENT
  Age: 36 Year
  Sex: Female

DRUGS (2)
  1. IBRANCE [Suspect]
     Active Substance: PALBOCICLIB
     Indication: Breast cancer metastatic
     Dosage: 125 MG, CYCLIC (DAILY 3X1 SCHEMA)
     Dates: start: 20190115
  2. FULVESTRANT [Concomitant]
     Active Substance: FULVESTRANT
     Dosage: 125 MG, DAILY
     Dates: start: 20190115

REACTIONS (1)
  - Death [Fatal]
